FAERS Safety Report 10173308 (Version 1)
Quarter: 2014Q2

REPORT INFORMATION
  Report Type: Spontaneous
  Country: JP (occurrence: None)
  Receive Date: 20140513
  Receipt Date: 20140513
  Transmission Date: 20141212
  Serious: Yes (Other)
  Sender: FDA-Public Use
  Company Number: FK201401712

PATIENT
  Age: 56 Year
  Sex: Female

DRUGS (6)
  1. FLUOROURACIL [Suspect]
     Indication: COLON CANCER
     Dosage: 3 CYCLES, RELATIVE DOSE STRENGTH OF 72%
  2. FLUOROURACIL [Suspect]
     Indication: METASTATIC NEOPLASM
     Dosage: 3 CYCLES, RELATIVE DOSE STRENGTH OF 72%
  3. LEUCOVORIN CALCIUM [Suspect]
     Indication: COLON CANCER
     Dosage: 3 CYCLES, RELATIVE DOSE STRENGTH OF 72%
  4. LEUCOVORIN CALCIUM [Suspect]
     Indication: METASTATIC NEOPLASM
     Dosage: 3 CYCLES, RELATIVE DOSE STRENGTH OF 72%
  5. OXALIPLATIN [Suspect]
     Indication: COLON CANCER
     Dosage: 3 CYCLE RELATIVE DOSE STRENGTH OF 72%
  6. OXALIPLATIN [Suspect]
     Indication: METASTATIC NEOPLASM
     Dosage: 3 CYCLE RELATIVE DOSE STRENGTH OF 72%

REACTIONS (2)
  - Biliary tract infection [None]
  - Toxicity to various agents [None]
